FAERS Safety Report 25078139 (Version 1)
Quarter: 2025Q1

REPORT INFORMATION
  Report Type: Spontaneous
  Country: US (occurrence: US)
  Receive Date: 20250314
  Receipt Date: 20250314
  Transmission Date: 20250408
  Serious: No
  Sender: ROCHE
  Company Number: US-ROCHE-10000224542

PATIENT
  Age: 56 Year
  Sex: Male
  Weight: 153.31 kg

DRUGS (8)
  1. XOLAIR [Suspect]
     Active Substance: OMALIZUMAB
     Indication: Food allergy
     Dosage: STRENGTH: 300MG/2ML
     Route: 058
     Dates: start: 202409
  2. XOLAIR [Suspect]
     Active Substance: OMALIZUMAB
     Indication: Milk allergy
     Dosage: TWO 300 MG INJECTIONS PER DOSE (ONE IN EACH ARM)
     Route: 058
     Dates: start: 2024
  3. XOLAIR [Suspect]
     Active Substance: OMALIZUMAB
     Indication: Hypersensitivity
  4. LEVOTHYROXINE [Concomitant]
     Active Substance: LEVOTHYROXINE
     Indication: Hypothyroidism
     Dosage: IN MORNING
     Route: 048
  5. FINASTERIDE [Concomitant]
     Active Substance: FINASTERIDE
     Route: 048
     Dates: start: 202501
  6. WELLBUTRIN [Concomitant]
     Active Substance: BUPROPION HYDROCHLORIDE
     Indication: Depression
     Route: 048
  7. OZEMPIC [Concomitant]
     Active Substance: SEMAGLUTIDE
     Indication: Diabetes mellitus
     Route: 058
     Dates: start: 202402
  8. BOTOX [Concomitant]
     Active Substance: ONABOTULINUMTOXINA
     Indication: Migraine

REACTIONS (6)
  - Peripheral swelling [Not Recovered/Not Resolved]
  - Headache [Not Recovered/Not Resolved]
  - Accidental exposure to product [Unknown]
  - Needle issue [Unknown]
  - Device defective [Unknown]
  - Underdose [Unknown]

NARRATIVE: CASE EVENT DATE: 20250301
